FAERS Safety Report 23284855 (Version 1)
Quarter: 2023Q4

REPORT INFORMATION
  Report Type: Spontaneous
  Country: DE (occurrence: DE)
  Receive Date: 20231211
  Receipt Date: 20231211
  Transmission Date: 20240110
  Serious: Yes (Hospitalization)
  Sender: FDA-Public Use
  Company Number: DE-ROCHE-3397191

PATIENT
  Age: 10 Year
  Sex: Female
  Weight: 33.5 kg

DRUGS (3)
  1. GOLIMUMAB [Suspect]
     Active Substance: GOLIMUMAB
     Indication: Juvenile idiopathic arthritis
     Dosage: UNK
     Route: 058
     Dates: start: 20210303, end: 20230116
  2. METHOTREXATE [Suspect]
     Active Substance: METHOTREXATE
     Indication: Juvenile idiopathic arthritis
     Dosage: UNK
     Route: 058
     Dates: start: 20230216
  3. TOCILIZUMAB [Suspect]
     Active Substance: TOCILIZUMAB
     Indication: Juvenile idiopathic arthritis
     Dosage: 162.000MG BIW
     Route: 058
     Dates: start: 20230216, end: 20230318

REACTIONS (1)
  - Abdominal wall abscess [Recovered/Resolved]

NARRATIVE: CASE EVENT DATE: 20230318
